FAERS Safety Report 6348830-3 (Version None)
Quarter: 2009Q3

REPORT INFORMATION
  Report Type: 
  Country: None (occurrence: None)
  Receive Date: 20090911
  Receipt Date: 20090904
  Transmission Date: 20100115
  Serious: Yes (Other)
  Sender: FDA-Public Use
  Company Number: SV-ASTRAZENECA-2009SE08113

PATIENT
  Age: 46 Month
  Sex: Female

DRUGS (4)
  1. VANNAIR [Suspect]
     Indication: ASTHMA
     Dosage: 80/4.5 UG BID
     Route: 055
     Dates: start: 20090714, end: 20090814
  2. RHINOCORT [Concomitant]
  3. AUGMENTIN [Concomitant]
  4. CELESTAMINE TAB [Concomitant]

REACTIONS (3)
  - CHEST DISCOMFORT [None]
  - NAUSEA [None]
  - VOMITING [None]
